FAERS Safety Report 7838130-4 (Version None)
Quarter: 2011Q4

REPORT INFORMATION
  Report Type: 
  Country: None (occurrence: None)
  Receive Date: 20111024
  Receipt Date: 20111014
  Transmission Date: 20120403
  Serious: Yes (Other)
  Sender: FDA-Public Use
  Company Number: CA-BAXTER-2011BH033084

PATIENT
  Age: 89 Year
  Sex: Female
  Weight: 54 kg

DRUGS (2)
  1. GAMMAGARD LIQUID [Suspect]
     Indication: BLOOD IMMUNOGLOBULIN A DECREASED
     Route: 042
     Dates: start: 20110908, end: 20110908
  2. GAMMAGARD LIQUID [Suspect]
     Indication: SELECTIVE IGG SUBCLASS DEFICIENCY
     Route: 042
     Dates: start: 20110908, end: 20110908

REACTIONS (10)
  - BACK PAIN [None]
  - BODY TEMPERATURE DECREASED [None]
  - HYPERSENSITIVITY [None]
  - HEADACHE [None]
  - CHILLS [None]
  - VOMITING [None]
  - NAUSEA [None]
  - HYPERTENSION [None]
  - CHEST PAIN [None]
  - TACHYCARDIA [None]
